FAERS Safety Report 4353463-4 (Version None)
Quarter: 2004Q2

REPORT INFORMATION
  Report Type: 
  Country: None (occurrence: None)
  Receive Date: 20040430
  Receipt Date: 20040419
  Transmission Date: 20050107
  Serious: Yes (Other)
  Sender: FDA-Public Use
  Company Number: JP-SHR-04-023711

PATIENT
  Age: 16 Year
  Sex: Female

DRUGS (4)
  1. BETASERON [Suspect]
     Indication: MULTIPLE SCLEROSIS
     Dosage: 8 MIU, EVERY 2D, SUBCUTANEOUS
     Route: 058
     Dates: start: 20021216
  2. MEDROL [Concomitant]
  3. FAMOTIDINE [Concomitant]
  4. GASTROM (ECABET MONOSODIUM) [Concomitant]

REACTIONS (1)
  - BONE NEOPLASM [None]
